FAERS Safety Report 8469343-9 (Version None)
Quarter: 2012Q2

REPORT INFORMATION
  Report Type: 
  Country: None (occurrence: None)
  Receive Date: 20120626
  Receipt Date: 20120615
  Transmission Date: 20120825
  Serious: Yes (Death, Hospitalization)
  Sender: FDA-Public Use
  Company Number: UA-ROCHE-1069198

PATIENT
  Age: 84 Year
  Sex: Male

DRUGS (1)
  1. METALYSE [Suspect]
     Indication: ACUTE MYOCARDIAL INFARCTION
     Route: 042
     Dates: start: 20120505, end: 20120505

REACTIONS (15)
  - PNEUMONIA [None]
  - HAEMORRHAGIC STROKE [None]
  - PULMONARY EMBOLISM [None]
  - VENTRICULAR TACHYCARDIA [None]
  - DYSPNOEA [None]
  - BLOOD PRESSURE DECREASED [None]
  - DECUBITUS ULCER [None]
  - HAEMODYNAMIC INSTABILITY [None]
  - PULSE ABSENT [None]
  - QUADRIPLEGIA [None]
  - SOPOR [None]
  - RESPIRATORY DISORDER [None]
  - BULBAR PALSY [None]
  - LOSS OF CONSCIOUSNESS [None]
  - COMA [None]
